FAERS Safety Report 8208968-2 (Version None)
Quarter: 2012Q1

REPORT INFORMATION
  Report Type: 
  Country: None (occurrence: None)
  Receive Date: 20120314
  Receipt Date: 20120309
  Transmission Date: 20120608
  Serious: Yes (Hospitalization)
  Sender: FDA-Public Use
  Company Number: BR-PFIZER INC-2012025801

PATIENT
  Age: 52 Year
  Sex: Male
  Weight: 82 kg

DRUGS (8)
  1. ASPIRIN [Concomitant]
     Indication: CARDIAC FAILURE
  2. LIPITOR [Concomitant]
     Indication: BLOOD CHOLESTEROL INCREASED
     Dosage: ONE TABLET DAILY
     Dates: start: 20120301
  3. ISOSORBIDE MONONITRATE [Concomitant]
     Indication: CARDIAC DISORDER
     Dosage: ONE TABLET DAILY
     Dates: start: 20080101
  4. ISOSORBIDE MONONITRATE [Concomitant]
     Indication: CARDIAC FAILURE
  5. ASPIRIN [Concomitant]
     Indication: COAGULOPATHY
     Dosage: TWO TABLET IN THE AFTERNOON
     Dates: start: 20070101
  6. VARENICLINE TARTRATE [Suspect]
     Indication: SMOKING CESSATION THERAPY
     Dosage: UNK
     Route: 048
     Dates: start: 20111206
  7. FLUOXETINE [Concomitant]
     Indication: ANXIETY
     Dosage: ONE TABLET IN THE MORNING AND ONE TABLET AT NIGHT
     Dates: start: 20110101
  8. VARENICLINE TARTRATE [Suspect]
     Dosage: 1 MG, 2X/DAY
     Route: 048
     Dates: end: 20120217

REACTIONS (1)
  - CARDIAC DISORDER [None]
